FAERS Safety Report 7101937-5 (Version None)
Quarter: 2010Q4

REPORT INFORMATION
  Report Type: 
  Country: None (occurrence: None)
  Receive Date: 20101115
  Receipt Date: 20100903
  Transmission Date: 20110411
  Serious: No
  Sender: FDA-Public Use
  Company Number: US-BAYER-201026206NA

PATIENT
  Age: 50 Year
  Sex: Female

DRUGS (7)
  1. LEUKINE [Suspect]
     Indication: METASTATIC MALIGNANT MELANOMA
     Dosage: 1ST CYCLE FOR 14 DAYS
     Dates: start: 20100501
  2. LEUKINE [Suspect]
     Dates: start: 20100719
  3. LEUKINE [Suspect]
     Dosage: START OF 3RD OR 4TH SERIES OF 14 DAYS OFF AND 14 DAYS ON
     Dates: start: 20100620
  4. COREG [Concomitant]
  5. ZOLOFT [Concomitant]
  6. BENICAR [Concomitant]
  7. SPIRONOLACTONE [Concomitant]

REACTIONS (3)
  - BONE PAIN [None]
  - FATIGUE [None]
  - SKIN ODOUR ABNORMAL [None]
